FAERS Safety Report 5212492-9 (Version None)
Quarter: 2007Q1

REPORT INFORMATION
  Report Type: 
  Country: None (occurrence: None)
  Receive Date: 20070118
  Receipt Date: 20070115
  Transmission Date: 20070707
  Serious: Yes (Other)
  Sender: FDA-Public Use
  Company Number: BR-SHR-BR-2006-040462

PATIENT
  Age: 26 Year
  Sex: Female

DRUGS (2)
  1. YASMIN [Suspect]
     Dosage: 1 TAB(S), UNK
     Route: 048
     Dates: start: 20050601
  2. YASMIN [Suspect]
     Dosage: 1 TAB(S), UNK
     Route: 048
     Dates: start: 20040101, end: 20050501

REACTIONS (4)
  - DRUG DOSE OMISSION [None]
  - INAPPROPRIATE SCHEDULE OF DRUG ADMINISTRATION [None]
  - METRORRHAGIA [None]
  - SURGERY [None]
